FAERS Safety Report 8895154 (Version 1)
Quarter: 2012Q4

REPORT INFORMATION
  Report Type: 
  Country: US (occurrence: US)
  Receive Date: 20121107
  Receipt Date: 20121107
  Transmission Date: 20130627
  Serious: No
  Sender: FDA-Public Use
  Company Number: US-AMGEN-USASP2011048786

PATIENT
  Sex: Male
  Weight: 58.96 kg

DRUGS (5)
  1. ENBREL [Suspect]
     Indication: PRODUCT USED FOR UNKNOWN INDICATION
     Dosage: 50 mg, qwk
     Route: 058
  2. PREDNISONE [Concomitant]
     Dosage: 10 mg, UNK
  3. HYDROCODONE W/PARACETAMOL [Concomitant]
  4. DORZOLAMID/TIMOLOL SANDOZ [Concomitant]
  5. HYDROCHLOROTHIAZIDE W/TRIAMTERENE [Concomitant]

REACTIONS (2)
  - Oedema peripheral [Unknown]
  - Erythema [Unknown]
